FAERS Safety Report 22028275 (Version 1)
Quarter: 2023Q1

REPORT INFORMATION
  Report Type: Spontaneous
  Country: US (occurrence: None)
  Receive Date: 20230223
  Receipt Date: 20230223
  Transmission Date: 20230418
  Serious: No
  Sender: FDA-Public Use
  Company Number: US-ROCHE-3179673

PATIENT
  Sex: Female

DRUGS (2)
  1. NUTROPIN [Suspect]
     Active Substance: SOMATROPIN
     Indication: Hypopituitarism
     Route: 058
     Dates: start: 20220819
  2. NUTROPIN [Suspect]
     Active Substance: SOMATROPIN

REACTIONS (7)
  - Drug ineffective [Unknown]
  - Weight increased [Unknown]
  - Memory impairment [Unknown]
  - Fatigue [Unknown]
  - Muscular weakness [Unknown]
  - Hyperhidrosis [Unknown]
  - Cold sweat [Unknown]
